FAERS Safety Report 19018425 (Version 12)
Quarter: 2025Q3

REPORT INFORMATION
  Report Type: Report from Study
  Country: US (occurrence: US)
  Receive Date: 20210316
  Receipt Date: 20250714
  Transmission Date: 20251021
  Serious: Yes (Hospitalization, Other)
  Sender: NOVARTIS
  Company Number: US-NOVARTISPH-NVSC2021US059906

PATIENT
  Age: 59 Year
  Sex: Female
  Weight: 83 kg

DRUGS (4)
  1. COSENTYX [Suspect]
     Active Substance: SECUKINUMAB
     Indication: Psoriasis
     Dosage: 300 MG, QW
     Route: 058
  2. COSENTYX [Suspect]
     Active Substance: SECUKINUMAB
     Route: 058
  3. LORAZEPAM [Concomitant]
     Active Substance: LORAZEPAM
     Indication: Anxiety
     Route: 048
  4. OMEPRAZOLE [Concomitant]
     Active Substance: OMEPRAZOLE
     Indication: Dyspepsia
     Route: 048

REACTIONS (15)
  - Mouth haemorrhage [Recovering/Resolving]
  - Unresponsive to stimuli [Recovering/Resolving]
  - Cardiac arrest [Recovering/Resolving]
  - Fatigue [Unknown]
  - Peripheral swelling [Recovering/Resolving]
  - Loss of consciousness [Recovering/Resolving]
  - Hypertension [Unknown]
  - Oedema peripheral [Unknown]
  - Confusional state [Unknown]
  - Injection site bruising [Not Recovered/Not Resolved]
  - Haematoma [Recovering/Resolving]
  - Psoriasis [Unknown]
  - Pruritus [Not Recovered/Not Resolved]
  - Ear disorder [Unknown]
  - Inappropriate schedule of product administration [Not Recovered/Not Resolved]

NARRATIVE: CASE EVENT DATE: 20210415
